FAERS Safety Report 10236898 (Version 1)
Quarter: 2014Q2

REPORT INFORMATION
  Report Type: Spontaneous
  Country: CH (occurrence: CH)
  Receive Date: 20140613
  Receipt Date: 20140613
  Transmission Date: 20141212
  Serious: Yes (Hospitalization)
  Sender: FDA-Public Use
  Company Number: CH-PFIZER INC-2014161786

PATIENT
  Age: 81 Year
  Sex: Female

DRUGS (7)
  1. CORDARONE [Suspect]
     Dosage: 200 MG, DAILY
     Route: 048
     Dates: start: 1999, end: 20131209
  2. ASPIRIN CARDIO [Concomitant]
     Dosage: UNK
  3. CO-ENATEC [Concomitant]
     Dosage: UNK
  4. ENATEC [Concomitant]
     Dosage: UNK
  5. PANTOZOL [Concomitant]
     Dosage: UNK
  6. PRAVALOTIN [Concomitant]
     Dosage: UNK
  7. ELTROXIN [Concomitant]
     Dosage: UNK

REACTIONS (4)
  - Atypical pneumonia [Recovered/Resolved]
  - Interstitial lung disease [Recovering/Resolving]
  - Presyncope [Unknown]
  - Fall [Unknown]
